FAERS Safety Report 13549569 (Version 1)
Quarter: 2017Q2

REPORT INFORMATION
  Report Type: Spontaneous
  Country: FR (occurrence: FR)
  Receive Date: 20170516
  Receipt Date: 20170516
  Transmission Date: 20170830
  Serious: Yes (Other)
  Sender: FDA-Public Use
  Company Number: PHHY2017FR066855

PATIENT
  Age: 8 Year
  Sex: Male
  Weight: 32 kg

DRUGS (5)
  1. ZOPHREN [Suspect]
     Active Substance: ONDANSETRON
     Indication: PROPHYLAXIS OF NAUSEA AND VOMITING
     Route: 042
     Dates: start: 201608
  2. HALOXAN [Suspect]
     Active Substance: IFOSFAMIDE
     Indication: SARCOMA
     Dosage: 1 DF (1 PER DAY DURING 3 DAYS), QD
     Route: 042
     Dates: start: 20160822, end: 20160824
  3. PENTACARINAT [Suspect]
     Active Substance: PENTAMIDINE ISETHIONATE
     Indication: PRODUCT USED FOR UNKNOWN INDICATION
     Route: 055
     Dates: start: 20160822, end: 20160822
  4. PLITICAN [Suspect]
     Active Substance: ALIZAPRIDE HYDROCHLORIDE
     Indication: PROPHYLAXIS OF NAUSEA AND VOMITING
     Route: 042
     Dates: start: 201608
  5. DOXORUBICINE [Suspect]
     Active Substance: DOXORUBICIN
     Indication: SARCOMA
     Dosage: 1 DF(1 PER DAY DURING 2 DAYS), QD
     Route: 042
     Dates: start: 20160822, end: 20160823

REACTIONS (2)
  - Encephalopathy [Recovered/Resolved]
  - Generalised tonic-clonic seizure [Recovered/Resolved]

NARRATIVE: CASE EVENT DATE: 20160823
